FAERS Safety Report 7159899-0 (Version None)
Quarter: 2010Q4

REPORT INFORMATION
  Report Type: 
  Country: None (occurrence: None)
  Receive Date: 20101214
  Receipt Date: 20101129
  Transmission Date: 20110411
  Serious: Yes (Other)
  Sender: FDA-Public Use
  Company Number: GB-BAYER-201046962GPV

PATIENT
  Age: 89 Year
  Sex: Male

DRUGS (3)
  1. ASPIRIN [Suspect]
     Indication: ACUTE CORONARY SYNDROME
  2. CLOPIDOGREL [Suspect]
     Indication: ACUTE CORONARY SYNDROME
     Route: 041
  3. INNOHEP [Suspect]
     Indication: ACUTE CORONARY SYNDROME

REACTIONS (5)
  - LUMBOSACRAL PLEXUS INJURY [None]
  - PERIPHERAL ARTERY ANEURYSM [None]
  - PULMONARY EMBOLISM [None]
  - RETROPERITONEAL HAEMORRHAGE [None]
  - SCIATICA [None]
